FAERS Safety Report 21680163 (Version 1)
Quarter: 2022Q4

REPORT INFORMATION
  Report Type: Report from Study
  Country: US (occurrence: US)
  Receive Date: 20221205
  Receipt Date: 20221205
  Transmission Date: 20230112
  Serious: No
  Sender: FDA-Public Use
  Company Number: US-ABBVIE-4180366

PATIENT
  Sex: Female

DRUGS (1)
  1. HUMIRA [Suspect]
     Active Substance: ADALIMUMAB
     Indication: Uveitis
     Dosage: STRENGTH 40 MILLIGRAM?CITRATE FREE
     Route: 058

REACTIONS (2)
  - Intraocular pressure decreased [Recovered/Resolved]
  - Visual impairment [Unknown]
